FAERS Safety Report 8719456 (Version 3)
Quarter: 2012Q4

REPORT INFORMATION
  Report Type: 
  Country: US (occurrence: US)
  Receive Date: 20120813
  Receipt Date: 20121024
  Transmission Date: 20130627
  Serious: Yes (Hospitalization, Other)
  Sender: FDA-Public Use
  Company Number: US-SHIRE-ALL1-2012-03753

PATIENT
  Age: 7 Year
  Sex: Male
  Weight: 30 kg

DRUGS (1)
  1. INTUNIV [Suspect]
     Indication: ATTENTION DEFICIT/HYPERACTIVITY DISORDER
     Dosage: 2 mg, 1x/day:qd
     Route: 048
     Dates: start: 20120729, end: 20120731

REACTIONS (3)
  - Pancreatitis [Recovering/Resolving]
  - Pleural effusion [Unknown]
  - Inappropriate schedule of drug administration [Recovered/Resolved]
